FAERS Safety Report 16026702 (Version 1)
Quarter: 2019Q1

REPORT INFORMATION
  Report Type: Spontaneous
  Country: US (occurrence: US)
  Receive Date: 20190303
  Receipt Date: 20190303
  Transmission Date: 20190418
  Serious: Yes (Death, Life-Threatening, Hospitalization, Disabling, Other)
  Sender: FDA-Public Use
  Company Number: US-009507513-1006USA02514

PATIENT
  Age: 50 Year
  Sex: Male
  Weight: 120 kg

DRUGS (3)
  1. VANCOMYCIN [Suspect]
     Active Substance: VANCOMYCIN
     Indication: WOUND INFECTION
     Dosage: 1500 MG, BID
     Route: 042
     Dates: start: 20090904, end: 20091001
  2. CUBICIN [Suspect]
     Active Substance: DAPTOMYCIN
     Indication: WOUND INFECTION
     Dosage: 650 MG, QD
     Route: 042
     Dates: start: 20091002, end: 20091005
  3. METRONIDAZOLE. [Suspect]
     Active Substance: METRONIDAZOLE
     Indication: WOUND INFECTION
     Dosage: 500 MG, TID
     Route: 048

REACTIONS (7)
  - Mental status changes [Unknown]
  - Leukocytosis [Unknown]
  - Acute kidney injury [Fatal]
  - Drug reaction with eosinophilia and systemic symptoms [Fatal]
  - Metabolic acidosis [Fatal]
  - Respiratory failure [Fatal]
  - Pruritus [Unknown]

NARRATIVE: CASE EVENT DATE: 20091005
